FAERS Safety Report 4390200-1 (Version None)
Quarter: 2004Q3

REPORT INFORMATION
  Report Type: 
  Country: None (occurrence: None)
  Receive Date: 20040706
  Receipt Date: 20040624
  Transmission Date: 20050211
  Serious: Yes (Hospitalization)
  Sender: FDA-Public Use
  Company Number: CH-GLAXOSMITHKLINE-B0337449A

PATIENT
  Age: 35 Year
  Sex: Female
  Weight: 63 kg

DRUGS (2)
  1. AUGMENTIN [Suspect]
     Indication: SINUSITIS
     Dosage: 500MG TWICE PER DAY
     Route: 048
     Dates: start: 20040507, end: 20040509
  2. L-THYROXIN [Concomitant]
     Dosage: 100UG PER DAY
     Route: 048

REACTIONS (4)
  - CLOSTRIDIUM COLITIS [None]
  - DEHYDRATION [None]
  - DIARRHOEA [None]
  - GASTROENTERITIS [None]
